FAERS Safety Report 9329778 (Version 2)
Quarter: 2014Q2

REPORT INFORMATION
  Report Type: Spontaneous
  Country: US (occurrence: US)
  Receive Date: 20130604
  Receipt Date: 20140524
  Transmission Date: 20141212
  Serious: No
  Sender: FDA-Public Use
  Company Number: US-SANOFI-AVENTIS-2013SA036756

PATIENT
  Age: 70 Year
  Sex: Male
  Weight: 102 kg

DRUGS (2)
  1. LANTUS SOLOSTAR [Suspect]
     Indication: DIABETES MELLITUS
     Dosage: DOSE:28 UNIT(S)
     Route: 051
     Dates: start: 201104
  2. SOLOSTAR [Suspect]
     Indication: DIABETES MELLITUS
     Dates: start: 2012

REACTIONS (5)
  - Anxiety [Recovered/Resolved]
  - Sleep disorder [Recovered/Resolved]
  - Dyspnoea [Recovered/Resolved]
  - Cough [Recovered/Resolved]
  - Blood glucose abnormal [Unknown]
